FAERS Safety Report 5292505-9 (Version None)
Quarter: 2007Q2

REPORT INFORMATION
  Report Type: 
  Country: None (occurrence: None)
  Receive Date: 20070410
  Receipt Date: 20070329
  Transmission Date: 20071010
  Serious: Yes (Other)
  Sender: FDA-Public Use
  Company Number: GB-PFIZER INC-2007025757

PATIENT
  Age: 47 Year
  Sex: Male
  Weight: 61 kg

DRUGS (2)
  1. LYRICA [Suspect]
     Indication: NEURALGIA
     Route: 048
     Dates: start: 20070201, end: 20070202
  2. TRAMADOL HCL [Concomitant]
     Indication: PAIN
     Route: 048

REACTIONS (4)
  - DYSARTHRIA [None]
  - FATIGUE [None]
  - HAEMATURIA [None]
  - SOMNOLENCE [None]
